FAERS Safety Report 10661684 (Version 2)
Quarter: 2015Q1

REPORT INFORMATION
  Report Type: Spontaneous
  Country: US (occurrence: US)
  Receive Date: 20141218
  Receipt Date: 20150108
  Transmission Date: 20150720
  Serious: No
  Sender: FDA-Public Use
  Company Number: US-GILEAD-2014-0127771

PATIENT
  Age: 69 Year
  Sex: Male

DRUGS (3)
  1. LETAIRIS [Suspect]
     Active Substance: AMBRISENTAN
     Indication: COR PULMONALE CHRONIC
  2. ORENITRAM [Concomitant]
     Active Substance: TREPROSTINIL
  3. LETAIRIS [Suspect]
     Active Substance: AMBRISENTAN
     Indication: PULMONARY HYPERTENSION
     Dosage: 10 MG, UNK
     Route: 065
     Dates: start: 20110208

REACTIONS (4)
  - Malaise [Unknown]
  - Nausea [Unknown]
  - Pain in extremity [Unknown]
  - Headache [Unknown]
